FAERS Safety Report 9342536 (Version 6)
Quarter: 2014Q2

REPORT INFORMATION
  Report Type: Spontaneous
  Country: US (occurrence: US)
  Receive Date: 20130611
  Receipt Date: 20140410
  Transmission Date: 20141212
  Serious: Yes (Other)
  Sender: FDA-Public Use
  Company Number: US-ELI_LILLY_AND_COMPANY-US201306000218

PATIENT
  Sex: Female

DRUGS (8)
  1. CYMBALTA [Suspect]
     Indication: DEPRESSION
     Dosage: 20 MG, QD
     Dates: end: 20130522
  2. TRAZODONE [Concomitant]
     Indication: SLEEP DISORDER
     Dosage: 150 MG, UNKNOWN
  3. ZIPRASIDONE [Concomitant]
     Indication: MOOD ALTERED
     Dosage: 60 MG, UNKNOWN
  4. ZOLPIDEM [Concomitant]
     Indication: SLEEP DISORDER
     Dosage: 10 MG, UNKNOWN
  5. LORAZEPAM [Concomitant]
     Indication: ANXIETY
     Dosage: 1 MG, UNKNOWN
  6. NEXIUM [Concomitant]
     Indication: GASTROOESOPHAGEAL REFLUX DISEASE
     Dosage: 20 MG, UNKNOWN
  7. CYCLOBENZAPRINE [Concomitant]
     Indication: MUSCLE DISORDER
     Dosage: 10 MG, UNKNOWN
  8. HYDROCORTISONE [Concomitant]
     Indication: BACK PAIN
     Dosage: UNK, PRN

REACTIONS (4)
  - Squamous cell carcinoma [Unknown]
  - Lichen planus [Unknown]
  - Agitation [Unknown]
  - Scar [Not Recovered/Not Resolved]
